FAERS Safety Report 5900476-4 (Version None)
Quarter: 2008Q3

REPORT INFORMATION
  Report Type: 
  Country: None (occurrence: None)
  Receive Date: 20080926
  Receipt Date: 20080912
  Transmission Date: 20090109
  Serious: No
  Sender: FDA-Public Use
  Company Number: US-B.I. PHARMACEUTICALS,INC./RIDGEFIELD-2008-BP-14425BP

PATIENT
  Sex: Female

DRUGS (3)
  1. SPIRIVA [Suspect]
     Indication: EMPHYSEMA
     Dosage: 18MCG
     Route: 048
     Dates: start: 20080401
  2. NEXIUM [Concomitant]
     Indication: STOMACH DISCOMFORT
  3. FLUOXETINE HCL [Concomitant]
     Indication: HORMONE LEVEL ABNORMAL

REACTIONS (3)
  - FATIGUE [None]
  - INCORRECT ROUTE OF DRUG ADMINISTRATION [None]
  - STOMACH DISCOMFORT [None]
